FAERS Safety Report 17452874 (Version 1)
Quarter: 2020Q1

REPORT INFORMATION
  Report Type: Spontaneous
  Country: US (occurrence: US)
  Receive Date: 20200224
  Receipt Date: 20200224
  Transmission Date: 20200409
  Serious: Yes (Hospitalization, Other)
  Sender: FDA-Public Use
  Company Number: US-AMGEN-USASP2020028152

PATIENT
  Age: 95 Year
  Sex: Female

DRUGS (1)
  1. PROLIA [Suspect]
     Active Substance: DENOSUMAB
     Indication: OSTEOPOROSIS POSTMENOPAUSAL
     Dosage: 60 MILLIGRAM
     Route: 065

REACTIONS (8)
  - Compression fracture [Unknown]
  - Lower limb fracture [Unknown]
  - Hip fracture [Unknown]
  - Multiple fractures [Unknown]
  - Back disorder [Unknown]
  - Femur fracture [Unknown]
  - Tooth abscess [Unknown]
  - Visual impairment [Unknown]

NARRATIVE: CASE EVENT DATE: 201912
